FAERS Safety Report 10471616 (Version 1)
Quarter: 2014Q3

REPORT INFORMATION
  Report Type: Spontaneous
  Country: US (occurrence: US)
  Receive Date: 20140923
  Receipt Date: 20140923
  Transmission Date: 20150326
  Serious: Yes (Death, Hospitalization, Other)
  Sender: FDA-Public Use
  Company Number: US-B.I. PHARMACEUTICALS,INC./RIDGEFIELD-2014-BI-44810BP

PATIENT
  Age: 81 Year
  Sex: Male
  Weight: 88.1 kg

DRUGS (2)
  1. PRADAXA [Suspect]
     Active Substance: DABIGATRAN ETEXILATE MESYLATE
     Indication: PRODUCT USED FOR UNKNOWN INDICATION
     Route: 065
  2. HEMODIALYSIS [Concomitant]
     Active Substance: DEVICE
     Indication: RENAL FAILURE CHRONIC
     Route: 065

REACTIONS (7)
  - Cardiac failure congestive [Fatal]
  - Anaemia [Unknown]
  - Staphylococcal infection [Unknown]
  - Hydrocele [Unknown]
  - Acute respiratory failure [Unknown]
  - Pneumonia [Unknown]
  - Sepsis [Unknown]

NARRATIVE: CASE EVENT DATE: 201305
